FAERS Safety Report 8525376-5 (Version None)
Quarter: 2012Q3

REPORT INFORMATION
  Report Type: 
  Country: None (occurrence: None)
  Receive Date: 20120720
  Receipt Date: 20120618
  Transmission Date: 20120928
  Serious: Yes (Life-Threatening, Other)
  Sender: FDA-Public Use
  Company Number: BE-ASTRAZENECA-2012SE25285

PATIENT
  Age: 97 Year
  Sex: Male
  Weight: 52 kg

DRUGS (6)
  1. VIMOVO [Suspect]
     Dosage: 1 TABLET, DAILY
     Route: 048
     Dates: end: 20111228
  2. LANITOP [Suspect]
     Indication: ATRIAL FIBRILLATION
     Route: 048
  3. CARVEDILOL [Concomitant]
     Indication: ATRIAL FIBRILLATION
     Dosage: 25 MG, 1/4
     Route: 048
  4. CARDIOASPIRINE [Concomitant]
     Dosage: DAILY
  5. LASIX [Concomitant]
     Indication: CARDIAC FAILURE
     Dosage: DAILY
  6. PANTOPRAZOLE [Concomitant]
     Indication: CARDIAC FAILURE
     Dosage: DAILY

REACTIONS (2)
  - TOXICITY TO VARIOUS AGENTS [None]
  - BLOOD CREATININE INCREASED [None]
